FAERS Safety Report 13650250 (Version 1)
Quarter: 2017Q2

REPORT INFORMATION
  Report Type: Spontaneous
  Country: US (occurrence: US)
  Receive Date: 20170613
  Receipt Date: 20170613
  Transmission Date: 20170830
  Serious: Yes (Hospitalization)
  Sender: FDA-Public Use
  Company Number: None

PATIENT
  Age: 27 Year
  Sex: Male
  Weight: 75.9 kg

DRUGS (1)
  1. DEXTROMETHORPHAN/GUAIFENESIN [Suspect]
     Active Substance: DEXTROMETHORPHAN\GUAIFENESIN
     Indication: UPPER RESPIRATORY TRACT INFECTION
     Dosage: 5-10 ML QID PO
     Route: 048
     Dates: start: 20170119, end: 20170119

REACTIONS (2)
  - Angioedema [None]
  - Blood pressure systolic increased [None]

NARRATIVE: CASE EVENT DATE: 20170119
